FAERS Safety Report 10018790 (Version 2)
Quarter: 2014Q2

REPORT INFORMATION
  Report Type: Spontaneous
  Country: IT (occurrence: IT)
  Receive Date: 20140318
  Receipt Date: 20140512
  Transmission Date: 20141212
  Serious: Yes (Other)
  Sender: FDA-Public Use
  Company Number: IT-SA-2014SA030182

PATIENT
  Age: 86 Year
  Sex: Female

DRUGS (4)
  1. KARVEA [Suspect]
     Indication: PRODUCT USED FOR UNKNOWN INDICATION
     Route: 048
     Dates: start: 20130601, end: 20140126
  2. LASIX [Suspect]
     Indication: PRODUCT USED FOR UNKNOWN INDICATION
     Route: 048
     Dates: start: 20130601, end: 20140126
  3. ISOPTIN [Suspect]
     Indication: PRODUCT USED FOR UNKNOWN INDICATION
     Route: 048
     Dates: start: 20130601, end: 20140126
  4. ACETYLSALICYLIC ACID [Concomitant]

REACTIONS (1)
  - Syncope [Recovering/Resolving]
